FAERS Safety Report 16802883 (Version 1)
Quarter: 2019Q3

REPORT INFORMATION
  Report Type: Spontaneous
  Country: US (occurrence: US)
  Receive Date: 20190913
  Receipt Date: 20190913
  Transmission Date: 20191005
  Serious: No
  Sender: FDA-Public Use
  Company Number: US-HETERO-HET2019US01250

PATIENT
  Age: 79 Year
  Sex: Female
  Weight: 86 kg

DRUGS (1)
  1. INDOMETHACIN. [Suspect]
     Active Substance: INDOMETHACIN
     Indication: ARTHRITIS
     Dosage: 25 MG, BID
     Route: 065
     Dates: start: 20190812, end: 20190904

REACTIONS (5)
  - Fluid retention [Recovered/Resolved]
  - Malaise [Recovered/Resolved]
  - Eye swelling [Recovered/Resolved]
  - Feeling abnormal [Recovered/Resolved]
  - Swelling [Recovered/Resolved]

NARRATIVE: CASE EVENT DATE: 20190813
